FAERS Safety Report 10715283 (Version 1)
Quarter: 2015Q1

REPORT INFORMATION
  Report Type: Spontaneous
  Country: FR (occurrence: FR)
  Receive Date: 20150116
  Receipt Date: 20150116
  Transmission Date: 20150721
  Serious: Yes (Hospitalization)
  Sender: FDA-Public Use
  Company Number: FR-ROCHE-1521291

PATIENT
  Age: 16 Year
  Sex: Female
  Weight: 90 kg

DRUGS (3)
  1. WILZIN [Concomitant]
     Active Substance: ZINC ACETATE
     Indication: HEPATO-LENTICULAR DEGENERATION
     Route: 048
     Dates: start: 1999
  2. APRANAX [Suspect]
     Active Substance: NAPROXEN
     Indication: TOXICITY TO VARIOUS AGENTS
     Route: 065
  3. PARACETAMOL [Suspect]
     Active Substance: ACETAMINOPHEN
     Indication: TOXICITY TO VARIOUS AGENTS
     Route: 065

REACTIONS (4)
  - Drug level increased [Recovered/Resolved]
  - Vomiting [Recovered/Resolved]
  - Toxicity to various agents [Recovered/Resolved]
  - Nausea [Recovered/Resolved]

NARRATIVE: CASE EVENT DATE: 20141027
